FAERS Safety Report 9106529 (Version 1)
Quarter: 2013Q1

REPORT INFORMATION
  Report Type: Report from Study
  Country: US (occurrence: US)
  Receive Date: 20130221
  Receipt Date: 20130221
  Transmission Date: 20140127
  Serious: Yes (Hospitalization)
  Sender: FDA-Public Use
  Company Number: US-ABBOTT-13P-163-1049095-00

PATIENT
  Age: 72 Year
  Sex: Female

DRUGS (12)
  1. HUMIRA [Suspect]
     Indication: COLITIS ULCERATIVE
     Dates: start: 20130111
  2. HUMIRA [Suspect]
     Dates: start: 20130125
  3. HUMIRA [Suspect]
     Dates: start: 20130208
  4. ALLOPURINOL [Concomitant]
     Indication: GOUT
  5. APRISO [Concomitant]
     Indication: DIARRHOEA
  6. PREDNISONE [Concomitant]
     Indication: PRODUCT USED FOR UNKNOWN INDICATION
     Dosage: 8 TABS DAILY X 1 WEEK, THEN WILL DECREASE BY 1 TAB PER WEEK UNTIL TAPERED OFF
  7. LORAZEPAM [Concomitant]
     Indication: PRODUCT USED FOR UNKNOWN INDICATION
  8. LANSOPRAZOLE [Concomitant]
     Indication: CROHN^S DISEASE
  9. NIASPAN [Concomitant]
     Indication: BLOOD CHOLESTEROL INCREASED
  10. PRAVASTATIN [Concomitant]
     Indication: BLOOD CHOLESTEROL INCREASED
  11. TRIAMTERENE [Concomitant]
     Indication: BLOOD PRESSURE INCREASED
  12. ASA [Concomitant]
     Indication: PROPHYLAXIS

REACTIONS (6)
  - Balance disorder [Unknown]
  - Fall [Recovered/Resolved]
  - Rib fracture [Recovered/Resolved]
  - Pain [Recovered/Resolved]
  - Diarrhoea [Recovered/Resolved]
  - Colitis ulcerative [Recovering/Resolving]
